FAERS Safety Report 18377232 (Version 2)
Quarter: 2020Q4

REPORT INFORMATION
  Report Type: Spontaneous
  Country: HR (occurrence: HR)
  Receive Date: 20201013
  Receipt Date: 20201014
  Transmission Date: 20210114
  Serious: Yes (Hospitalization, Other)
  Sender: FDA-Public Use
  Company Number: HR-JNJFOC-20201013703

PATIENT
  Sex: Male

DRUGS (3)
  1. METADON                            /00068901/ [Concomitant]
     Active Substance: METHADONE HYDROCHLORIDE
     Dosage: 60 MG, QD
  2. RIVAROXABAN [Suspect]
     Active Substance: RIVAROXABAN
     Route: 048
  3. RIVAROXABAN [Suspect]
     Active Substance: RIVAROXABAN
     Indication: DEEP VEIN THROMBOSIS
     Dosage: 20 MG, QD
     Route: 048

REACTIONS (8)
  - Fatigue [Unknown]
  - Groin abscess [Unknown]
  - Peripheral swelling [Unknown]
  - Pelvic venous thrombosis [Unknown]
  - Pain in extremity [Unknown]
  - Chest pain [Unknown]
  - Pulmonary embolism [Unknown]
  - Pyrexia [Unknown]
